FAERS Safety Report 10187293 (Version 1)
Quarter: 2014Q2

REPORT INFORMATION
  Report Type: Spontaneous
  Country: CN (occurrence: CN)
  Receive Date: 20140522
  Receipt Date: 20140522
  Transmission Date: 20141212
  Serious: Yes (Other)
  Sender: FDA-Public Use
  Company Number: CN-MERCK-1405CHN009123

PATIENT
  Age: 31 Year
  Sex: Male

DRUGS (2)
  1. PROPECIA [Suspect]
     Indication: ANDROGENETIC ALOPECIA
     Dosage: 1 MG, QD
     Route: 048
     Dates: start: 20140503
  2. MINOXIDIL [Concomitant]
     Indication: ANDROGENETIC ALOPECIA

REACTIONS (1)
  - Deafness unilateral [Unknown]
